FAERS Safety Report 7042937-3 (Version None)
Quarter: 2010Q4

REPORT INFORMATION
  Report Type: 
  Country: None (occurrence: None)
  Receive Date: 20101013
  Receipt Date: 20100426
  Transmission Date: 20110411
  Serious: No
  Sender: FDA-Public Use
  Company Number: US-ASTRAZENECA-2010SE11172

PATIENT
  Age: 73 Year
  Sex: Male

DRUGS (10)
  1. SYMBICORT [Suspect]
     Dosage: 160/4.5 MG TWO PUFFS
     Route: 055
  2. ALLEGRA [Concomitant]
  3. GUAIFENESIN [Concomitant]
  4. PREDNISONE [Concomitant]
  5. FISH OIL [Concomitant]
  6. SINGULAIR [Concomitant]
  7. PRAVASTATIN [Concomitant]
  8. FUROSEMIDE [Concomitant]
  9. VITAMIN D [Concomitant]
  10. RAQ [Concomitant]

REACTIONS (1)
  - DYSPNOEA [None]
